FAERS Safety Report 24579539 (Version 2)
Quarter: 2024Q4

REPORT INFORMATION
  Report Type: Spontaneous
  Country: US (occurrence: US)
  Receive Date: 20241105
  Receipt Date: 20241105
  Transmission Date: 20250114
  Serious: Yes (Other)
  Sender: ROCHE
  Company Number: US-ROCHE-10000120754

PATIENT
  Age: 64 Year
  Sex: Female
  Weight: 81.19 kg

DRUGS (7)
  1. RITUXAN [Suspect]
     Active Substance: RITUXIMAB
     Indication: Rheumatoid arthritis
     Dosage: SEPARATED BY 2 WEEKS
     Route: 065
     Dates: start: 2019, end: 2019
  2. LEVOTHYROXINE [Concomitant]
     Active Substance: LEVOTHYROXINE
     Dosage: DOSE:112
  3. BRILINTA [Concomitant]
     Active Substance: TICAGRELOR
     Indication: Myocardial infarction
  4. ASPIRIN [Concomitant]
     Active Substance: ASPIRIN
     Indication: Myocardial infarction
     Dates: start: 202311
  5. NORTRIPTYLINE [Concomitant]
     Active Substance: NORTRIPTYLINE
     Indication: Depression
     Dates: start: 202208
  6. ATIVAN [Concomitant]
     Active Substance: LORAZEPAM
     Dates: start: 202202
  7. ORENCIA [Concomitant]
     Active Substance: ABATACEPT
     Dosage: RECEIVED FOR THE LAST 6 MONTHS

REACTIONS (3)
  - Mental disorder [Unknown]
  - Myocardial infarction [Unknown]
  - Memory impairment [Not Recovered/Not Resolved]

NARRATIVE: CASE EVENT DATE: 20220101
